FAERS Safety Report 5087074-2 (Version None)
Quarter: 2006Q3

REPORT INFORMATION
  Report Type: 
  Country: None (occurrence: None)
  Receive Date: 20060821
  Receipt Date: 20060809
  Transmission Date: 20061208
  Serious: Yes (Other)
  Sender: FDA-Public Use
  Company Number: 2006097931

PATIENT
  Sex: Female

DRUGS (7)
  1. LYRICA [Suspect]
     Indication: ARTHRALGIA
     Dosage: ORAL
     Route: 048
     Dates: start: 20041201
  2. CELEBREX [Concomitant]
  3. SIMVASTATIN [Concomitant]
  4. PANTOZOL (PANTOPRAZOLE SODIUM) [Concomitant]
  5. JODYTHYROX (LEVOTHYROXINE SODIUM, POTASSIUM IODIDE) [Concomitant]
  6. OXYCODONE HCL [Concomitant]
  7. AMITRIPTYLINE (AMITRIPTYLINE) [Concomitant]

REACTIONS (1)
  - LYMPHANGIOMA [None]
